FAERS Safety Report 7760847-0 (Version None)
Quarter: 2011Q3

REPORT INFORMATION
  Report Type: 
  Country: None (occurrence: None)
  Receive Date: 20110919
  Receipt Date: 20110916
  Transmission Date: 20111222
  Serious: Yes (Death, Other)
  Sender: FDA-Public Use
  Company Number: KR-PFIZER INC-2011219039

PATIENT
  Age: 76 Year
  Sex: Female

DRUGS (1)
  1. NORVASC [Suspect]
     Indication: BLOOD PRESSURE
     Route: 048

REACTIONS (6)
  - DEATH [None]
  - EYE ABSCESS [None]
  - GAIT DISTURBANCE [None]
  - DIZZINESS POSTURAL [None]
  - DIARRHOEA [None]
  - RASH MACULAR [None]
